FAERS Safety Report 4325648-4 (Version None)
Quarter: 2004Q1

REPORT INFORMATION
  Report Type: 
  Country: None (occurrence: None)
  Receive Date: 20040324
  Receipt Date: 20040308
  Transmission Date: 20041129
  Serious: Yes (Other)
  Sender: FDA-Public Use
  Company Number: USA040361293

PATIENT
  Age: 81 Year
  Sex: Female

DRUGS (6)
  1. FORTEO [Suspect]
     Dosage: 20 UG
     Dates: start: 20040201
  2. ETODOLAC [Concomitant]
  3. XANAX [Concomitant]
  4. LEVOTHYROXINE SODIUM [Concomitant]
  5. BUPROPION HYDROCHLORIDE [Concomitant]
  6. PAROXETINE HCL [Concomitant]

REACTIONS (4)
  - FALL [None]
  - INCISION SITE HAEMORRHAGE [None]
  - PHARMACEUTICAL PRODUCT COMPLAINT [None]
  - SKIN LACERATION [None]
